FAERS Safety Report 14868130 (Version 1)
Quarter: 2018Q2

REPORT INFORMATION
  Report Type: Report from Study
  Country: ES (occurrence: ES)
  Receive Date: 20180509
  Receipt Date: 20180509
  Transmission Date: 20180711
  Serious: Yes (Other)
  Sender: FDA-Public Use
  Company Number: ES-SUN PHARMACEUTICAL INDUSTRIES LTD-2018RR-172158

PATIENT
  Age: 5 Year
  Sex: Female

DRUGS (4)
  1. IRINOTECAN [Suspect]
     Active Substance: IRINOTECAN
     Indication: DISEASE PROGRESSION
  2. CISPLATIN. [Suspect]
     Active Substance: CISPLATIN
     Indication: DISEASE PROGRESSION
  3. IRINOTECAN [Suspect]
     Active Substance: IRINOTECAN
     Indication: ASTROCYTOMA
     Dosage: 50-65 MG/M2
     Route: 065
  4. CISPLATIN. [Suspect]
     Active Substance: CISPLATIN
     Indication: ASTROCYTOMA
     Dosage: 30 MG/M2, 16 DOSES
     Route: 065

REACTIONS (1)
  - Drug effect incomplete [Unknown]
